FAERS Safety Report 11192450 (Version 1)
Quarter: 2015Q2

REPORT INFORMATION
  Report Type: Spontaneous
  Country: IT (occurrence: IT)
  Receive Date: 20150616
  Receipt Date: 20150616
  Transmission Date: 20150821
  Serious: Yes (Other)
  Sender: FDA-Public Use
  Company Number: IT-HOSPIRA-2601276

PATIENT
  Age: 9 Year
  Sex: Male

DRUGS (2)
  1. SALINE                             /01783401/ [Concomitant]
     Indication: CATHETER MANAGEMENT
     Dates: start: 20090629, end: 20090629
  2. CARBOPLATIN. [Suspect]
     Active Substance: CARBOPLATIN
     Indication: ASTROCYTOMA
     Route: 042
     Dates: start: 20090629, end: 20090629

REACTIONS (2)
  - Urticaria [Recovered/Resolved]
  - Cough [Recovered/Resolved]

NARRATIVE: CASE EVENT DATE: 20090629
